FAERS Safety Report 16563095 (Version 1)
Quarter: 2019Q3

REPORT INFORMATION
  Report Type: Report from Study
  Country: US (occurrence: US)
  Receive Date: 20190711
  Receipt Date: 20190711
  Transmission Date: 20191004
  Serious: No
  Sender: FDA-Public Use
  Company Number: PHEH2019US029008

PATIENT
  Sex: Female

DRUGS (2)
  1. GILENYA [Suspect]
     Active Substance: FINGOLIMOD HYDROCHLORIDE
     Indication: MULTIPLE SCLEROSIS
     Dosage: 0.5 MG, QD
     Route: 048
     Dates: start: 2016
  2. AUGMENTIN [Suspect]
     Active Substance: AMOXICILLIN\CLAVULANATE POTASSIUM
     Indication: SINUSITIS
     Route: 065

REACTIONS (8)
  - Diarrhoea [Unknown]
  - Nausea [Unknown]
  - Facial pain [Unknown]
  - Ear discomfort [Unknown]
  - Vomiting [Unknown]
  - Abdominal discomfort [Unknown]
  - Sinusitis [Recovering/Resolving]
  - Nasal congestion [Recovering/Resolving]
